FAERS Safety Report 4831102-3 (Version None)
Quarter: 2005Q4

REPORT INFORMATION
  Report Type: 
  Country: None (occurrence: None)
  Receive Date: 20051118
  Receipt Date: 20051109
  Transmission Date: 20060501
  Serious: Yes (Hospitalization)
  Sender: FDA-Public Use
  Company Number: US-ABBOTT-05P-163-0316804-00

PATIENT
  Sex: Male

DRUGS (5)
  1. TRICOR [Suspect]
     Indication: BLOOD CHOLESTEROL
     Route: 048
     Dates: start: 20050901, end: 20050909
  2. UNSPECIFIED BETA BLOCKER [Concomitant]
     Indication: BLOOD PRESSURE
     Route: 048
  3. ZOCOR [Concomitant]
     Indication: BLOOD CHOLESTEROL
     Route: 048
     Dates: start: 20050901, end: 20050901
  4. CRESTOR [Concomitant]
     Indication: BLOOD CHOLESTEROL
     Route: 048
     Dates: start: 20050901, end: 20050901
  5. ANTIBIOTICS [Concomitant]
     Indication: PYREXIA
     Dates: start: 20050901

REACTIONS (6)
  - ASTHENIA [None]
  - CONFUSIONAL STATE [None]
  - FACIAL PARESIS [None]
  - HEADACHE [None]
  - LETHARGY [None]
  - PYREXIA [None]
